FAERS Safety Report 4284942-6 (Version None)
Quarter: 2004Q1

REPORT INFORMATION
  Report Type: 
  Country: None (occurrence: None)
  Receive Date: 20040202
  Receipt Date: 20040121
  Transmission Date: 20041129
  Serious: Yes (Other)
  Sender: FDA-Public Use
  Company Number: AU-JNJFOC-20040104786

PATIENT
  Age: 68 Year
  Sex: Male

DRUGS (5)
  1. REOPRO [Suspect]
     Indication: DRUG USE FOR UNKNOWN INDICATION
     Dosage: INJECTION
     Dates: start: 20020612
  2. ASPIRIN [Concomitant]
  3. PRAVASTATIN SODIUM [Concomitant]
  4. RANITIDINE HYDROCHLORIDE [Concomitant]
  5. METOPROLOL SUCCINATE [Concomitant]

REACTIONS (1)
  - PULMONARY HAEMORRHAGE [None]
